FAERS Safety Report 25130233 (Version 1)
Quarter: 2025Q1

REPORT INFORMATION
  Report Type: Spontaneous
  Country: US (occurrence: US)
  Receive Date: 20250327
  Receipt Date: 20250327
  Transmission Date: 20250409
  Serious: No
  Sender: ESPERION THERAPEUTICS
  Company Number: US-ESPERIONTHERAPEUTICS-2024USA00298

PATIENT
  Sex: Female

DRUGS (1)
  1. NEXLIZET [Suspect]
     Active Substance: BEMPEDOIC ACID\EZETIMIBE
     Indication: Product used for unknown indication
     Dosage: UNK, QD
     Route: 065
     Dates: start: 20240221

REACTIONS (3)
  - Nasal congestion [Unknown]
  - Sinus pain [Unknown]
  - Sinusitis [Unknown]

NARRATIVE: CASE EVENT DATE: 20240221
